FAERS Safety Report 4444622-0 (Version None)
Quarter: 2004Q3

REPORT INFORMATION
  Report Type: 
  Country: None (occurrence: None)
  Receive Date: 20040902
  Receipt Date: 20040824
  Transmission Date: 20050211
  Serious: Yes (Hospitalization)
  Sender: FDA-Public Use
  Company Number: 2004230180US

PATIENT
  Sex: 0

DRUGS (1)
  1. BEXTRA [Suspect]

REACTIONS (1)
  - ANAPHYLACTIC SHOCK [None]
